FAERS Safety Report 17492548 (Version 1)
Quarter: 2020Q1

REPORT INFORMATION
  Report Type: Spontaneous
  Country: US (occurrence: US)
  Receive Date: 20200304
  Receipt Date: 20200304
  Transmission Date: 20200409
  Serious: Yes (Other)
  Sender: FDA-Public Use
  Company Number: US-CELGENEUS-USA-20200300350

PATIENT
  Sex: Male
  Weight: 83.08 kg

DRUGS (5)
  1. DARZALEX [Concomitant]
     Active Substance: DARATUMUMAB
     Dosage: DOSE REDUCED
     Route: 065
  2. POMALYST [Suspect]
     Active Substance: POMALIDOMIDE
     Indication: PLASMA CELL MYELOMA
     Dosage: 4 MILLIGRAM
     Route: 048
     Dates: start: 201901
  3. POMALYST [Suspect]
     Active Substance: POMALIDOMIDE
     Dosage: 2 MILLIGRAM
     Route: 048
     Dates: start: 202001
  4. POMALYST [Suspect]
     Active Substance: POMALIDOMIDE
     Dosage: 4-3 MILLIGRAM
     Route: 048
     Dates: start: 201905
  5. DARZALEX [Concomitant]
     Active Substance: DARATUMUMAB
     Indication: PRODUCT USED FOR UNKNOWN INDICATION
     Route: 065

REACTIONS (1)
  - Full blood count decreased [Not Recovered/Not Resolved]
